FAERS Safety Report 9718080 (Version 1)
Quarter: 2013Q4

REPORT INFORMATION
  Report Type: Spontaneous
  Country: US (occurrence: US)
  Receive Date: 20131125
  Receipt Date: 20131125
  Transmission Date: 20140711
  Serious: No
  Sender: FDA-Public Use
  Company Number: US-VIVUS-2013V1000506

PATIENT
  Age: 53 Year
  Sex: Female
  Weight: 71.28 kg

DRUGS (4)
  1. QSYMIA 7.5MG/46MG [Suspect]
     Indication: WEIGHT DECREASED
     Route: 048
     Dates: start: 201305
  2. QSYMIA 3.75MG/23MG [Suspect]
     Indication: WEIGHT DECREASED
     Route: 048
     Dates: start: 201305, end: 201305
  3. ESTRIOL CREAM [Concomitant]
     Indication: HORMONE REPLACEMENT THERAPY
     Route: 067
  4. ESTRIOL VAGINAL SUPPOSITORY [Concomitant]
     Indication: HORMONE REPLACEMENT THERAPY
     Route: 067

REACTIONS (3)
  - Fungal infection [Recovered/Resolved]
  - Burning sensation [Not Recovered/Not Resolved]
  - Urinary tract infection [Recovered/Resolved]
